FAERS Safety Report 4373058-6 (Version None)
Quarter: 2004Q2

REPORT INFORMATION
  Report Type: 
  Country: None (occurrence: None)
  Receive Date: 20040603
  Receipt Date: 20040514
  Transmission Date: 20050107
  Serious: Yes (Other)
  Sender: FDA-Public Use
  Company Number: USA040464463

PATIENT
  Age: 67 Year
  Sex: Female

DRUGS (4)
  1. EVISTA [Suspect]
     Indication: OSTEOPOROSIS
     Dosage: 60 MG/1 DAY
     Dates: start: 20010201
  2. CALCIUM [Concomitant]
  3. VITAMIN D [Concomitant]
  4. ASPIRIN [Concomitant]

REACTIONS (24)
  - ARTHRITIS [None]
  - CARDIAC DISORDER [None]
  - CARDIOMEGALY [None]
  - CEREBROVASCULAR ACCIDENT [None]
  - CHRONIC OBSTRUCTIVE AIRWAYS DISEASE [None]
  - COMPRESSION FRACTURE [None]
  - DEAFNESS UNILATERAL [None]
  - DIZZINESS [None]
  - DYSPNOEA [None]
  - GAIT DISTURBANCE [None]
  - HERNIA [None]
  - MUSCLE CRAMP [None]
  - MUSCLE SPASMS [None]
  - MYOCARDIAL INFARCTION [None]
  - NOSOCOMIAL INFECTION [None]
  - OEDEMA PERIPHERAL [None]
  - PAIN IN EXTREMITY [None]
  - POST PROCEDURAL PAIN [None]
  - PROCEDURAL COMPLICATION [None]
  - RENAL DISORDER [None]
  - RESPIRATORY DISORDER [None]
  - THROMBOSIS [None]
  - ULCER [None]
  - VENTRICULAR DYSFUNCTION [None]
